FAERS Safety Report 5567389-1 (Version None)
Quarter: 2007Q4

REPORT INFORMATION
  Report Type: 
  Country: None (occurrence: None)
  Receive Date: 20071214
  Receipt Date: 20071212
  Transmission Date: 20080405
  Serious: Yes (Life-Threatening, Other)
  Sender: FDA-Public Use
  Company Number: 6039736

PATIENT
  Age: 73 Year
  Sex: Female

DRUGS (7)
  1. BISOPROLOL FUMARATE [Suspect]
     Indication: CARDIAC FAILURE
     Dosage: 2,5 MG (2,5 MG, 1 IN 1 D) ORAL; LONG TERM
     Route: 048
  2. DIGOXIN TAB [Suspect]
     Indication: CARDIAC FAILURE
     Dosage: 0, 25 MG (0, 25 MG, 1 IN 1 D) ORAL; LONG TERM
     Route: 048
     Dates: end: 20070831
  3. RAMIPRIL [Concomitant]
  4. ALDACTONE [Concomitant]
  5. LASIX [Concomitant]
  6. PREVISCAN (FLUINDIONE) [Concomitant]
  7. ACARBOSE [Concomitant]

REACTIONS (8)
  - ATRIAL FIBRILLATION [None]
  - ATRIOVENTRICULAR BLOCK COMPLETE [None]
  - HYPERKALAEMIA [None]
  - LUNG INFECTION [None]
  - METABOLIC ACIDOSIS [None]
  - OVERDOSE [None]
  - RENAL FAILURE ACUTE [None]
  - THERAPEUTIC AGENT TOXICITY [None]
